FAERS Safety Report 11923654 (Version 1)
Quarter: 2016Q1

REPORT INFORMATION
  Report Type: Spontaneous
  Country: US (occurrence: US)
  Receive Date: 20160118
  Receipt Date: 20160118
  Transmission Date: 20160526
  Serious: No
  Sender: FDA-Public Use
  Company Number: US-ZYDUS-009014

PATIENT

DRUGS (1)
  1. RAMIPRIL. [Suspect]
     Active Substance: RAMIPRIL

REACTIONS (5)
  - Nausea [Unknown]
  - Gait disturbance [Unknown]
  - Dizziness [Unknown]
  - Tinnitus [Unknown]
  - Pruritus [Unknown]
